FAERS Safety Report 9666305 (Version 2)
Quarter: 2013Q4

REPORT INFORMATION
  Report Type: Spontaneous
  Country: US (occurrence: US)
  Receive Date: 20131104
  Receipt Date: 20131205
  Transmission Date: 20140711
  Serious: Yes (Hospitalization, Other)
  Sender: FDA-Public Use
  Company Number: US-TEVA-442008USA

PATIENT
  Age: 45 Year
  Sex: Female
  Weight: 54.48 kg

DRUGS (1)
  1. PARAGARD 380A [Suspect]
     Indication: CONTRACEPTION
     Route: 015
     Dates: start: 2009, end: 201310

REACTIONS (5)
  - Vaginal haemorrhage [Recovered/Resolved]
  - Female genital tract fistula [Recovered/Resolved]
  - Device breakage [Recovered/Resolved]
  - Abnormal faeces [Recovered/Resolved]
  - Medical device complication [Recovered/Resolved]
